FAERS Safety Report 8246866-9 (Version None)
Quarter: 2012Q1

REPORT INFORMATION
  Report Type: 
  Country: None (occurrence: None)
  Receive Date: 20120330
  Receipt Date: 20120322
  Transmission Date: 20120608
  Serious: Yes (Other)
  Sender: FDA-Public Use
  Company Number: DE-B.I. PHARMACEUTICALS,INC./RIDGEFIELD-2012-EU-01673GD

PATIENT
  Age: 45 Year
  Sex: Male

DRUGS (9)
  1. TIPRANAVIR [Suspect]
  2. DIDANOSINE [Suspect]
     Indication: HIV INFECTION
  3. LOPINAVIR/RITONAVIR [Suspect]
  4. NEVIRAPINE [Suspect]
     Indication: HIV INFECTION
  5. TIPRANAVIR [Suspect]
     Indication: HIV INFECTION
  6. ENFUVIRTIDE [Suspect]
     Indication: HIV INFECTION
  7. ENFUVIRTIDE [Suspect]
  8. LOPINAVIR/RITONAVIR [Suspect]
     Indication: HIV INFECTION
  9. DIDANOSINE [Suspect]

REACTIONS (4)
  - INJECTION SITE REACTION [None]
  - TRANSAMINASES INCREASED [None]
  - HEPATOTOXICITY [None]
  - PATHOGEN RESISTANCE [None]
